FAERS Safety Report 6153542-5 (Version None)
Quarter: 2009Q2

REPORT INFORMATION
  Report Type: 
  Country: None (occurrence: None)
  Receive Date: 20090413
  Receipt Date: 20090410
  Transmission Date: 20091009
  Serious: Yes (Death, Other)
  Sender: FDA-Public Use
  Company Number: US-ASTRAZENECA-2008UW27599

PATIENT
  Age: 622 Month
  Sex: Male

DRUGS (1)
  1. SEROQUEL [Suspect]
     Indication: DEPRESSION
     Route: 048
     Dates: start: 20050524, end: 20071031

REACTIONS (3)
  - DEATH [None]
  - PANCREATITIS [None]
  - TYPE 2 DIABETES MELLITUS [None]
